FAERS Safety Report 7138049-0 (Version None)
Quarter: 2010Q4

REPORT INFORMATION
  Report Type: 
  Country: None (occurrence: None)
  Receive Date: 20101206
  Receipt Date: 20101130
  Transmission Date: 20110411
  Serious: Yes (Other)
  Sender: FDA-Public Use
  Company Number: BR-SANOFI-AVENTIS-2010SA072850

PATIENT
  Sex: Female
  Weight: 58 kg

DRUGS (3)
  1. LANTUS [Suspect]
     Indication: TYPE 2 DIABETES MELLITUS
     Route: 058
  2. LANTUS [Suspect]
     Route: 058
  3. OPTIPEN [Suspect]
     Indication: TYPE 2 DIABETES MELLITUS

REACTIONS (3)
  - ASTHENIA [None]
  - CORONARY ARTERY OCCLUSION [None]
  - DIZZINESS [None]
